FAERS Safety Report 19906122 (Version 1)
Quarter: 2021Q3

REPORT INFORMATION
  Report Type: Spontaneous
  Country: DE (occurrence: DE)
  Receive Date: 20210930
  Receipt Date: 20210930
  Transmission Date: 20211014
  Serious: Yes (Hospitalization)
  Sender: FDA-Public Use
  Company Number: DE-MYLANLABS-2021M1066641

PATIENT
  Age: 93 Year
  Sex: Male

DRUGS (10)
  1. METAMIZOL                          /06276701/ [Concomitant]
     Active Substance: METAMIZOLE
     Dosage: BEI BEDARF 20 BIS 30 GTT, TROPFEN
  2. ZOPICLON [Concomitant]
     Active Substance: ZOPICLONE
     Dosage: 7.5 MILLIGRAM, BID
  3. DOXEPIN [Suspect]
     Active Substance: DOXEPIN
     Indication: PRODUCT USED FOR UNKNOWN INDICATION
     Dosage: 50 MILLIGRAM, QD
  4. TORASEMID [Concomitant]
     Active Substance: TORSEMIDE
     Dosage: 10 MILLIGRAM, QD
  5. ISOSORBIDMONONITRAT [Concomitant]
     Active Substance: ISOSORBIDE MONONITRATE
     Dosage: 60 MILLIGRAM, QD
  6. LAXANS?RATIOPHARM PICO [Concomitant]
     Dosage: 14 GTT DROPS, PRN
  7. DULOXETINE. [Suspect]
     Active Substance: DULOXETINE
     Indication: PRODUCT USED FOR UNKNOWN INDICATION
     Dosage: 60 MILLIGRAM, QD
  8. INSPIOLTO RESPIMAT [Concomitant]
     Active Substance: OLODATEROL HYDROCHLORIDE\TIOTROPIUM BROMIDE MONOHYDRATE
     Dosage: 2.5|2.5 ?G, 2?0?0?0, L?SUNG ZUR INHALATION
     Route: 055
  9. ASPIRIN. [Concomitant]
     Active Substance: ASPIRIN
     Dosage: 100 MILLIGRAM, QD
  10. CAPTOPRIL. [Concomitant]
     Active Substance: CAPTOPRIL
     Dosage: 50 MILLIGRAM, BID

REACTIONS (3)
  - Flatulence [Not Recovered/Not Resolved]
  - Constipation [Not Recovered/Not Resolved]
  - Abdominal pain [Not Recovered/Not Resolved]
